FAERS Safety Report 7929168-7 (Version None)
Quarter: 2011Q4

REPORT INFORMATION
  Report Type: 
  Country: None (occurrence: None)
  Receive Date: 20111120
  Receipt Date: 20111107
  Transmission Date: 20120403
  Serious: Yes (Other)
  Sender: FDA-Public Use
  Company Number: CA-ELI_LILLY_AND_COMPANY-CA201111002395

PATIENT
  Age: 60 Year
  Sex: Female

DRUGS (9)
  1. PLAVIX [Concomitant]
  2. ARTHROTEC [Concomitant]
  3. AMITRIPTYLINE HCL [Concomitant]
  4. GABAPENTIN [Concomitant]
  5. RAMIPRIL [Concomitant]
  6. FORTEO [Suspect]
     Indication: OSTEOPOROSIS
     Dosage: 20 UG, QD
     Route: 058
     Dates: start: 20110520
  7. WELLBUTRIN [Concomitant]
  8. LIPITOR [Concomitant]
  9. HYDROMORPH [Concomitant]

REACTIONS (4)
  - MEDICAL DEVICE IMPLANTATION [None]
  - IMPAIRED HEALING [None]
  - FRACTURE NONUNION [None]
  - GAIT DISTURBANCE [None]
